FAERS Safety Report 15458064 (Version 1)
Quarter: 2018Q4

REPORT INFORMATION
  Report Type: Spontaneous
  Country: US (occurrence: US)
  Receive Date: 20181003
  Receipt Date: 20181003
  Transmission Date: 20190204
  Serious: No
  Sender: FDA-Public Use
  Company Number: US-PHARMING-PHAUS2018000633

PATIENT

DRUGS (10)
  1. STERILE WATER [Concomitant]
     Active Substance: WATER
  2. ESTRACE [Concomitant]
     Active Substance: ESTRADIOL
  3. RUCONEST [Suspect]
     Active Substance: HUMAN C1-ESTERASE INHIBITOR
     Indication: HEREDITARY ANGIOEDEMA
     Dosage: 2800 IU, AS NEEDED
     Route: 042
     Dates: start: 20180606
  4. HEPARIN [Concomitant]
     Active Substance: HEPARIN SODIUM
  5. CELEXA [Concomitant]
     Active Substance: CITALOPRAM HYDROBROMIDE
  6. MIRALAX [Concomitant]
     Active Substance: POLYETHYLENE GLYCOL 3350
  7. SODIUM CHLORIDE. [Concomitant]
     Active Substance: SODIUM CHLORIDE
  8. MELATONIN [Concomitant]
     Active Substance: MELATONIN
  9. EPINEPHRINE. [Concomitant]
     Active Substance: EPINEPHRINE
  10. ZOFRAN [Concomitant]
     Active Substance: ONDANSETRON HYDROCHLORIDE

REACTIONS (1)
  - Hereditary angioedema [Unknown]

NARRATIVE: CASE EVENT DATE: 20180822
